FAERS Safety Report 16739980 (Version 1)
Quarter: 2019Q3

REPORT INFORMATION
  Report Type: Other
  Country: GB (occurrence: GB)
  Receive Date: 20190826
  Receipt Date: 20190826
  Transmission Date: 20191005
  Serious: Yes (Life-Threatening)
  Sender: FDA-Public Use
  Company Number: GB-MACLEODS PHARMACEUTICALS US LTD-MAC2019022671

PATIENT

DRUGS (2)
  1. PANTOPRAZOLE [Suspect]
     Active Substance: PANTOPRAZOLE
     Indication: PRODUCT USED FOR UNKNOWN INDICATION
     Dosage: 20 MILLIGRAM, 94
     Route: 048
     Dates: start: 20190709, end: 20190716
  2. PAROXETINE. [Concomitant]
     Active Substance: PAROXETINE
     Indication: PRODUCT USED FOR UNKNOWN INDICATION
     Dosage: 20 MILLIGRAM, 245
     Route: 065
     Dates: start: 2004

REACTIONS (8)
  - Confusional state [Unknown]
  - Suicidal ideation [Unknown]
  - Insomnia [Unknown]
  - Hyperhidrosis [Unknown]
  - Product dispensing error [Unknown]
  - Mental disorder [Unknown]
  - Diarrhoea [Unknown]
  - Dizziness [Unknown]
